FAERS Safety Report 11679739 (Version 2)
Quarter: 2015Q4

REPORT INFORMATION
  Report Type: Spontaneous
  Country: US (occurrence: US)
  Receive Date: 20151027
  Receipt Date: 20151104
  Transmission Date: 20160304
  Serious: No
  Sender: FDA-Public Use
  Company Number: US-ELI_LILLY_AND_COMPANY-US201005002441

PATIENT
  Sex: Female

DRUGS (5)
  1. FORTEO [Suspect]
     Active Substance: TERIPARATIDE
     Dosage: 20 UG, DAILY (1/D)
  2. FORTEO [Suspect]
     Active Substance: TERIPARATIDE
     Dosage: 20 UG, DAILY (1/D)
  3. FORTEO [Suspect]
     Active Substance: TERIPARATIDE
     Indication: OSTEOPOROSIS
     Dosage: 20 UG, DAILY (1/D)
     Route: 065
     Dates: start: 201004
  4. FORTEO [Suspect]
     Active Substance: TERIPARATIDE
     Dosage: 20 UG, DAILY (1/D)
     Dates: start: 20101106
  5. FORTEO [Suspect]
     Active Substance: TERIPARATIDE
     Dosage: 20 UG, DAILY (1/D)
     Dates: end: 20101208

REACTIONS (17)
  - Irritable bowel syndrome [Unknown]
  - Blood calcium increased [Unknown]
  - Nodule [Unknown]
  - Injection site haemorrhage [Unknown]
  - Nausea [Unknown]
  - Nasopharyngitis [Unknown]
  - Arthralgia [Unknown]
  - Flatulence [Unknown]
  - Haemorrhage [Unknown]
  - Pain in extremity [Unknown]
  - Abdominal discomfort [Unknown]
  - Gastrointestinal disorder [Unknown]
  - Injection site bruising [Recovering/Resolving]
  - Bone pain [Unknown]
  - Abdominal distension [Unknown]
  - Haemorrhoids [Unknown]
  - Pain [Unknown]
